FAERS Safety Report 9516695 (Version 4)
Quarter: 2014Q4

REPORT INFORMATION
  Report Type: Spontaneous
  Country: US (occurrence: US)
  Receive Date: 20130911
  Receipt Date: 20141001
  Transmission Date: 20150529
  Serious: Yes (Hospitalization, Disabling, Other)
  Sender: FDA-Public Use
  Company Number: US-009507513-1309USA003663

PATIENT
  Sex: Female
  Weight: 79.37 kg

DRUGS (7)
  1. CALCIUM (UNSPECIFIED) (+) VITAMIN D (UNSPECIFIED) [Concomitant]
     Active Substance: CALCIUM CARBONATE\VITAMIN D
     Dosage: 2000 MG, QD
     Dates: start: 2000
  2. CHONDROITIN SULFATE (BOVINE)\GLUCOSAMINE SULFATE [Concomitant]
     Active Substance: CHONDROITIN SULFATE (BOVINE)\GLUCOSAMINE SULFATE
     Dosage: 1500 MG, QD
     Dates: start: 2005
  3. FOSAMAX [Suspect]
     Active Substance: ALENDRONATE SODIUM
     Indication: OSTEOPENIA
     Dosage: 35 MG, QW
     Route: 048
     Dates: start: 20040603, end: 20080216
  4. ALENDRONATE SODIUM. [Suspect]
     Active Substance: ALENDRONATE SODIUM
     Indication: OSTEOPENIA
     Dosage: 35 MG, QW
     Route: 048
     Dates: start: 20080216, end: 20110817
  5. OMEGA-3 MARINE TRIGLYCERIDES [Concomitant]
     Active Substance: FISH OIL
     Dosage: 1200 MG, QD
     Dates: start: 2005
  6. VITAMINS (UNSPECIFIED) [Concomitant]
     Active Substance: VITAMINS
     Dosage: 2000 IU, QD
     Dates: start: 1990
  7. ALENDRONATE SODIUM. [Suspect]
     Active Substance: ALENDRONATE SODIUM
     Dosage: 70 MG, QW
     Route: 048
     Dates: start: 20110817, end: 201110

REACTIONS (23)
  - Plantar fasciitis [Unknown]
  - Intervertebral disc protrusion [Unknown]
  - Muscle spasms [Unknown]
  - Pain in extremity [Unknown]
  - Hypertension [Unknown]
  - Intramedullary rod insertion [Unknown]
  - Emotional disorder [Unknown]
  - Intramedullary rod insertion [Unknown]
  - Femur fracture [Not Recovered/Not Resolved]
  - Adverse event [Unknown]
  - Hyperlipidaemia [Unknown]
  - Atrial fibrillation [Recovered/Resolved]
  - Tachycardia [Unknown]
  - Vomiting [Unknown]
  - Arrhythmia [Unknown]
  - Low turnover osteopathy [Not Recovered/Not Resolved]
  - Femur fracture [Not Recovered/Not Resolved]
  - Impaired healing [Unknown]
  - Deafness traumatic [Unknown]
  - Vitamin D deficiency [Unknown]
  - Hypercalciuria [Unknown]
  - Osteoarthritis [Unknown]
  - Hypercholesterolaemia [Unknown]

NARRATIVE: CASE EVENT DATE: 2006
